FAERS Safety Report 5086049-7 (Version None)
Quarter: 2006Q3

REPORT INFORMATION
  Report Type: 
  Country: None (occurrence: None)
  Receive Date: 20060817
  Receipt Date: 20060802
  Transmission Date: 20061208
  Serious: Yes (Hospitalization)
  Sender: FDA-Public Use
  Company Number: JP-2006-019503

PATIENT
  Age: 39 Year
  Sex: Male

DRUGS (9)
  1. BETAFERON(INTERFERON  BETA - 1B) INJECTION, 250UG [Suspect]
     Indication: MULTIPLE SCLEROSIS
     Dosage: SEE IMAGE
     Route: 058
     Dates: start: 19950101, end: 19970101
  2. BETAFERON(INTERFERON  BETA - 1B) INJECTION, 250UG [Suspect]
     Indication: MULTIPLE SCLEROSIS
     Dosage: SEE IMAGE
     Route: 058
     Dates: start: 20060522, end: 20060625
  3. CLONAZEPAM [Concomitant]
  4. PHENYTOIN [Concomitant]
  5. NEO DOPASTON (CARBIDOPA, LEVODOPA) [Concomitant]
  6. BLADDERON (FLAVOXATE HYDROCHLORIDE) [Concomitant]
  7. TAMSULOSIN HCL [Concomitant]
  8. LIPITOR [Concomitant]
  9. METHYCOOL (MECOBALAMIN) [Concomitant]

REACTIONS (20)
  - ABASIA [None]
  - ALCOHOL USE [None]
  - COGNITIVE DISORDER [None]
  - CONDITION AGGRAVATED [None]
  - CONVULSION [None]
  - DISORIENTATION [None]
  - DYSPHAGIA [None]
  - DYSSTASIA [None]
  - GAIT DISTURBANCE [None]
  - INTELLIGENCE TEST ABNORMAL [None]
  - MULTIPLE SCLEROSIS [None]
  - NUCLEAR MAGNETIC RESONANCE IMAGING BRAIN ABNORMAL [None]
  - PLEURAL EFFUSION [None]
  - PNEUMONIA ASPIRATION [None]
  - PORIOMANIA [None]
  - PSYCHIATRIC SYMPTOM [None]
  - RESTLESSNESS [None]
  - SPEECH DISORDER [None]
  - THERAPY NON-RESPONDER [None]
  - URINARY INCONTINENCE [None]
